FAERS Safety Report 20444340 (Version 1)
Quarter: 2022Q1

REPORT INFORMATION
  Report Type: Spontaneous
  Country: US (occurrence: None)
  Receive Date: 20220207
  Receipt Date: 20220207
  Transmission Date: 20220423
  Serious: Yes (Other)
  Sender: FDA-Public Use
  Company Number: None

PATIENT
  Age: 66 Year
  Sex: Male

DRUGS (4)
  1. EDARBYCLOR [Suspect]
     Active Substance: AZILSARTAN KAMEDOXOMIL\CHLORTHALIDONE
     Indication: Blood pressure measurement
     Dosage: OTHER QUANTITY : 1 TABLET(S);?FREQUENCY : DAILY;?
     Route: 048
     Dates: start: 20211209, end: 20220204
  2. FLOMAX [Concomitant]
     Active Substance: TAMSULOSIN HYDROCHLORIDE
  3. PANTAPROZOL [Concomitant]
  4. ROSYVASTATIN [Concomitant]

REACTIONS (4)
  - Blood creatinine increased [None]
  - Blood uric acid increased [None]
  - Blood urea increased [None]
  - Renal disorder [None]

NARRATIVE: CASE EVENT DATE: 20220204
